FAERS Safety Report 4641725-2 (Version None)
Quarter: 2005Q2

REPORT INFORMATION
  Report Type: 
  Country: None (occurrence: None)
  Receive Date: 20050421
  Receipt Date: 20050411
  Transmission Date: 20051028
  Serious: Yes (Other)
  Sender: FDA-Public Use
  Company Number: 2005057051

PATIENT
  Age: 35 Year
  Sex: Female
  Weight: 54.4316 kg

DRUGS (11)
  1. ROGAINE [Suspect]
     Indication: ALOPECIA
     Dosage: 1 ML BID, TOPICAL
     Route: 061
     Dates: start: 20050301
  2. LEVOTHYROXINE SODIUM [Concomitant]
  3. THYROID TAB [Concomitant]
  4. FLUOXETINE HCL [Concomitant]
  5. ZOLPIDEM TARTRATE [Concomitant]
  6. MULTIVITAMINS (ASCORBIC ACID, ERGOCALCIFEROL, FOLIC ACID, NICOTINAMIDE [Concomitant]
  7. DIGESTIVES, INCL ENZYMES (DIGETIVES, INCL ENZYMES) [Concomitant]
  8. SALMON OIL (SALMON OIL) [Concomitant]
  9. CALCIUM/MINERALS NOS (CALCIUM, MINERALS NOS) [Concomitant]
  10. CYANOCOBALAMIN [Concomitant]
  11. FOLIC ACID [Concomitant]

REACTIONS (3)
  - ALOPECIA [None]
  - FOOD ALLERGY [None]
  - HYPERSENSITIVITY [None]
